FAERS Safety Report 6757529-0 (Version None)
Quarter: 2010Q2

REPORT INFORMATION
  Report Type: 
  Country: None (occurrence: None)
  Receive Date: 20100607
  Receipt Date: 20100527
  Transmission Date: 20101027
  Serious: No
  Sender: FDA-Public Use
  Company Number: 2009BI024660

PATIENT
  Sex: Female

DRUGS (1)
  1. TYSABRI [Suspect]
     Indication: MULTIPLE SCLEROSIS
     Route: 042
     Dates: start: 20061005

REACTIONS (9)
  - ANKLE FRACTURE [None]
  - ARTHRITIS [None]
  - FALL [None]
  - HYPERAESTHESIA [None]
  - HYPOAESTHESIA [None]
  - LIGAMENT OPERATION [None]
  - LOSS OF CONTROL OF LEGS [None]
  - LOWER EXTREMITY MASS [None]
  - WOUND HAEMORRHAGE [None]
